FAERS Safety Report 6724719-2 (Version None)
Quarter: 2010Q2

REPORT INFORMATION
  Report Type: 
  Country: None (occurrence: None)
  Receive Date: 20100513
  Receipt Date: 20100510
  Transmission Date: 20101027
  Serious: Yes (Hospitalization)
  Sender: FDA-Public Use
  Company Number: FR-MERCK-1005FRA00055

PATIENT
  Sex: Male

DRUGS (8)
  1. ZETIA [Suspect]
     Route: 048
     Dates: start: 20100219, end: 20100228
  2. OMACOR [Suspect]
     Route: 065
     Dates: start: 20100219, end: 20100228
  3. CARDENSIEL [Concomitant]
     Route: 065
  4. COVERSYL (PERINDOPRIL ARGININE) [Concomitant]
     Route: 065
  5. PLAVIX [Concomitant]
     Route: 065
  6. PARIET [Concomitant]
     Route: 065
  7. CRESTOR [Concomitant]
     Route: 048
     Dates: end: 20100219
  8. CRESTOR [Concomitant]
     Route: 048

REACTIONS (3)
  - MALAISE [None]
  - NAUSEA [None]
  - VOMITING [None]
